FAERS Safety Report 8919463 (Version 1)
Quarter: 2012Q4

REPORT INFORMATION
  Report Type: 
  Country: US (occurrence: US)
  Receive Date: 20121121
  Receipt Date: 20121121
  Transmission Date: 20130627
  Serious: Yes (Hospitalization)
  Sender: FDA-Public Use
  Company Number: US-B.I. PHARMACEUTICALS,INC./RIDGEFIELD-2012-BI-00190BP

PATIENT
  Sex: Female

DRUGS (3)
  1. COMBIVENT [Suspect]
     Indication: EMPHYSEMA
     Route: 055
     Dates: start: 20121029, end: 20121110
  2. COMBIVENT [Suspect]
     Indication: EMPHYSEMA
     Route: 055
  3. ALBUTEROL IPRATROPIUM [Concomitant]
     Indication: EMPHYSEMA
     Dosage: 5 mg
     Route: 055

REACTIONS (5)
  - Emphysema [Recovered/Resolved]
  - Cough [Not Recovered/Not Resolved]
  - Wheezing [Not Recovered/Not Resolved]
  - Dyspnoea [Not Recovered/Not Resolved]
  - Cataract [Not Recovered/Not Resolved]
